FAERS Safety Report 5572808-0 (Version None)
Quarter: 2007Q4

REPORT INFORMATION
  Report Type: 
  Country: None (occurrence: None)
  Receive Date: 20071223
  Receipt Date: 20071210
  Transmission Date: 20080405
  Serious: Yes (Hospitalization)
  Sender: FDA-Public Use
  Company Number: PHRM2007FR02774

PATIENT
  Age: 49 Year
  Sex: Male

DRUGS (1)
  1. GLEEVEC [Suspect]
     Indication: GASTROINTESTINAL STROMAL TUMOUR
     Dosage: 400 MG, QD
     Route: 048
     Dates: start: 20060829

REACTIONS (12)
  - CHEILITIS [None]
  - EPIDERMAL NECROSIS [None]
  - GLOSSODYNIA [None]
  - INFLAMMATION [None]
  - OEDEMA PERIPHERAL [None]
  - PALMAR-PLANTAR ERYTHRODYSAESTHESIA SYNDROME [None]
  - PARONYCHIA [None]
  - PENIS DISORDER [None]
  - PURPURA [None]
  - RASH ERYTHEMATOUS [None]
  - RASH PAPULAR [None]
  - TOXIC SKIN ERUPTION [None]
